FAERS Safety Report 8771852 (Version 1)
Quarter: 2012Q4

REPORT INFORMATION
  Report Type: 
  Country: US (occurrence: US)
  Receive Date: 20120905
  Receipt Date: 20120905
  Transmission Date: 20130627
  Serious: No
  Sender: FDA-Public Use
  Company Number: US-ASTRAZENECA-2012SE60418

PATIENT
  Age: 15600 Day
  Sex: Male

DRUGS (1)
  1. ZOMIG-ZMT [Suspect]
     Indication: MIGRAINE
     Route: 048

REACTIONS (4)
  - Depression [Unknown]
  - Frustration [Unknown]
  - Migraine [Unknown]
  - Drug dose omission [Unknown]
